FAERS Safety Report 12956785 (Version 1)
Quarter: 2016Q4

REPORT INFORMATION
  Report Type: Report from Study
  Country: US (occurrence: US)
  Receive Date: 20161118
  Receipt Date: 20161118
  Transmission Date: 20170207
  Serious: Yes (Other)
  Sender: FDA-Public Use
  Company Number: US-TEVA-691793USA

PATIENT
  Sex: Female

DRUGS (16)
  1. NEURONTIN [Concomitant]
     Active Substance: GABAPENTIN
  2. ESTRADIOL. [Concomitant]
     Active Substance: ESTRADIOL
  3. DOCUSATE [Concomitant]
     Active Substance: DOCUSATE
  4. AMPYRA [Concomitant]
     Active Substance: DALFAMPRIDINE
  5. BIOTIN [Concomitant]
     Active Substance: BIOTIN
  6. COQ10 [Concomitant]
     Active Substance: UBIDECARENONE
  7. OMEGA 3 [Concomitant]
     Active Substance: OMEGA-3 FATTY ACIDS
  8. COPAXONE [Suspect]
     Active Substance: GLATIRAMER ACETATE
     Route: 058
     Dates: start: 20140314
  9. CITRACAL [Concomitant]
     Active Substance: CALCIUM CITRATE
  10. MULTIVITAMIN [Concomitant]
     Active Substance: VITAMINS
  11. COPAXONE [Suspect]
     Active Substance: GLATIRAMER ACETATE
     Indication: MULTIPLE SCLEROSIS
     Route: 058
     Dates: start: 19991011, end: 20140116
  12. ENABLEX [Concomitant]
     Active Substance: DARIFENACIN HYDROBROMIDE
  13. ALPHAGAN P [Concomitant]
     Active Substance: BRIMONIDINE TARTRATE
  14. ISTALOL [Concomitant]
     Active Substance: TIMOLOL MALEATE
  15. PENLAC [Concomitant]
     Active Substance: CICLOPIROX
  16. VITAMIN D3 [Concomitant]
     Active Substance: CHOLECALCIFEROL

REACTIONS (4)
  - Product use issue [Unknown]
  - Secondary progressive multiple sclerosis [Unknown]
  - Multiple sclerosis [Unknown]
  - Lipodystrophy acquired [Not Recovered/Not Resolved]

NARRATIVE: CASE EVENT DATE: 2007
